FAERS Safety Report 11607857 (Version 1)
Quarter: 2015Q4

REPORT INFORMATION
  Report Type: Spontaneous
  Country: US (occurrence: US)
  Receive Date: 20151007
  Receipt Date: 20151007
  Transmission Date: 20160304
  Serious: Yes (Hospitalization)
  Sender: FDA-Public Use
  Company Number: US-NPS_PHARMACEUTICALS-001219

PATIENT
  Age: 29 Year
  Sex: Male

DRUGS (14)
  1. XARELTO [Concomitant]
     Active Substance: RIVAROXABAN
     Indication: DEEP VEIN THROMBOSIS
     Route: 048
     Dates: start: 2015
  2. ERGOCALCIFEROL. [Concomitant]
     Active Substance: ERGOCALCIFEROL
     Indication: OSTEOPOROSIS
     Dosage: DF, 5 TIMES A WEEK
  3. PEPTAMEN [Concomitant]
     Indication: NUTRITIONAL SUPPLEMENTATION
     Dosage: 1.5 (UNK), [DAILY]
     Route: 048
  4. DESYREL [Concomitant]
     Active Substance: TRAZODONE HYDROCHLORIDE
     Indication: BIPOLAR DISORDER
     Dosage: 1 TABLET, NIGHTLY [PRN FOR SLEEP]
     Route: 048
  5. URSODIOL. [Concomitant]
     Active Substance: URSODIOL
     Indication: CHOLESTASIS
     Route: 048
  6. GATTEX [Suspect]
     Active Substance: TEDUGLUTIDE\WATER
     Route: 058
     Dates: start: 201405, end: 201405
  7. INTRAVENOUS FLUIDS [Concomitant]
     Indication: FLUID REPLACEMENT
     Dosage: 3000 ML DAILY
  8. ZYPREXA [Concomitant]
     Active Substance: OLANZAPINE
     Indication: BIPOLAR I DISORDER
     Dosage: [NIGHTLY]
     Route: 048
  9. XARELTO [Concomitant]
     Active Substance: RIVAROXABAN
     Indication: ANTICOAGULANT THERAPY
     Route: 048
     Dates: start: 2015
  10. GATTEX [Suspect]
     Active Substance: TEDUGLUTIDE\WATER
     Indication: SHORT-BOWEL SYNDROME
     Dosage: 2.5 MG, DAILY
     Route: 058
     Dates: start: 20140407, end: 201405
  11. COGENTIN [Concomitant]
     Active Substance: BENZTROPINE MESYLATE
     Indication: BIPOLAR I DISORDER
     Route: 048
  12. GATTEX [Suspect]
     Active Substance: TEDUGLUTIDE\WATER
     Route: 058
     Dates: start: 201405
  13. IMODIUM [Concomitant]
     Active Substance: LOPERAMIDE HYDROCHLORIDE
     Indication: DIARRHOEA
     Dates: start: 2014, end: 20140509
  14. TPN [Concomitant]
     Active Substance: AMINO ACIDS\DEXTROSE\ELECTROLYTES NOS\SOYBEAN OIL
     Indication: MEDICAL DIET
     Dosage: DF
     Dates: end: 20150509

REACTIONS (12)
  - Weight decreased [Unknown]
  - Diarrhoea [Not Recovered/Not Resolved]
  - Weight increased [Unknown]
  - Abdominal pain [Recovering/Resolving]
  - Hypophagia [Recovered/Resolved]
  - Constipation [Recovering/Resolving]
  - Nausea [Recovering/Resolving]
  - Injection site haemorrhage [Unknown]
  - Vomiting [Recovering/Resolving]
  - Small intestinal obstruction [Recovering/Resolving]
  - Drug dose omission [Recovered/Resolved]
  - Urine output increased [Unknown]

NARRATIVE: CASE EVENT DATE: 2014
